FAERS Safety Report 11326235 (Version 1)
Quarter: 2015Q3

REPORT INFORMATION
  Report Type: Spontaneous
  Country: US (occurrence: US)
  Receive Date: 20150731
  Receipt Date: 20150731
  Transmission Date: 20151125
  Serious: No
  Sender: FDA-Public Use
  Company Number: US-009507513-1507USA010566

PATIENT
  Age: 22 Year
  Sex: Female
  Weight: 79.82 kg

DRUGS (1)
  1. NEXPLANON [Suspect]
     Active Substance: ETONOGESTREL
     Indication: CONTRACEPTION
     Dosage: 1 ROD
     Route: 059
     Dates: start: 201403, end: 20150721

REACTIONS (6)
  - Implant site fibrosis [Unknown]
  - Medical device complication [Unknown]
  - Device breakage [Not Recovered/Not Resolved]
  - Implant site pruritus [Unknown]
  - Device difficult to use [Not Recovered/Not Resolved]
  - Implant site scar [Unknown]

NARRATIVE: CASE EVENT DATE: 20150721
